FAERS Safety Report 8344068-9 (Version None)
Quarter: 2012Q2

REPORT INFORMATION
  Report Type: 
  Country: None (occurrence: None)
  Receive Date: 20120508
  Receipt Date: 20110316
  Transmission Date: 20120825
  Serious: No
  Sender: FDA-Public Use
  Company Number: US-TEVA-2011000691

PATIENT
  Sex: Female

DRUGS (2)
  1. RITUXIMAB [Suspect]
     Route: 042
  2. TREANDA [Suspect]
     Indication: NON-HODGKIN'S LYMPHOMA
     Route: 042
     Dates: start: 20101021

REACTIONS (1)
  - SKIN DISCOLOURATION [None]
